FAERS Safety Report 7956817-X (Version None)
Quarter: 2011Q4

REPORT INFORMATION
  Report Type: 
  Country: None (occurrence: None)
  Receive Date: 20111205
  Receipt Date: 20111012
  Transmission Date: 20120403
  Serious: No
  Sender: FDA-Public Use
  Company Number: US-BAYER-2011-099163

PATIENT
  Age: 60 Year
  Sex: Female

DRUGS (2)
  1. NAPROXEN [Suspect]
     Dosage: 1 DF, BID
     Route: 048
  2. ALEVE (CAPLET) [Suspect]
     Dosage: 1 DF, BID
     Route: 048
     Dates: start: 20110901, end: 20111012

REACTIONS (1)
  - DYSGEUSIA [None]
